FAERS Safety Report 7306439-9 (Version None)
Quarter: 2011Q1

REPORT INFORMATION
  Report Type: 
  Country: None (occurrence: None)
  Receive Date: 20110119
  Receipt Date: 20101014
  Transmission Date: 20110831
  Serious: Yes (Hospitalization)
  Sender: FDA-Public Use
  Company Number: A-US2010-40222

PATIENT
  Age: 50 Year
  Sex: Female

DRUGS (2)
  1. TRACLEER [Suspect]
     Indication: PULMONARY ARTERIAL HYPERTENSION
     Dosage: ORAL
     Route: 048
     Dates: start: 20090930
  2. CALCIUM CHANNEL BLOCKERS [Concomitant]

REACTIONS (4)
  - FLUID RETENTION [None]
  - PNEUMONIA [None]
  - DYSPNOEA [None]
  - OEDEMA [None]
